FAERS Safety Report 7511751-4 (Version None)
Quarter: 2011Q2

REPORT INFORMATION
  Report Type: 
  Country: None (occurrence: None)
  Receive Date: 20110519
  Receipt Date: 20110504
  Transmission Date: 20111010
  Serious: Yes (Other)
  Sender: FDA-Public Use
  Company Number: AUR-APL-2010-03116

PATIENT
  Age: 73 Year
  Weight: 77.9 kg

DRUGS (6)
  1. RAMIPRIL [Concomitant]
  2. RISPERIDONE [Concomitant]
  3. TERBINAFINE HCL [Suspect]
     Indication: FUNGAL INFECTION
     Dosage: 250MG, DAILY, ORAL
     Route: 048
     Dates: start: 20100801, end: 20100908
  4. ACC-001 (ACC-001, QS-21) [Suspect]
     Indication: DEMENTIA ALZHEIMER'S TYPE
     Dosage: INTRAMUSCULAR
     Route: 030
     Dates: start: 20091214, end: 20091214
  5. ACC-001 (ACC-001, QS-21) [Suspect]
     Indication: DEMENTIA ALZHEIMER'S TYPE
     Dosage: INTRAMUSCULAR
     Route: 030
     Dates: start: 20100616, end: 20100616
  6. GALANTAMINE HYDROBROMIDE [Concomitant]

REACTIONS (8)
  - RAYNAUD'S PHENOMENON [None]
  - SKIN FISSURES [None]
  - RASH [None]
  - PETECHIAE [None]
  - SKIN EXFOLIATION [None]
  - RASH GENERALISED [None]
  - WHITE BLOOD CELLS URINE POSITIVE [None]
  - INTERNATIONAL NORMALISED RATIO DECREASED [None]
